FAERS Safety Report 5274581-2 (Version None)
Quarter: 2007Q1

REPORT INFORMATION
  Report Type: 
  Country: None (occurrence: None)
  Receive Date: 20070323
  Receipt Date: 20070313
  Transmission Date: 20070707
  Serious: Yes (Other)
  Sender: FDA-Public Use
  Company Number: JP-PFIZER INC-2007021502

PATIENT
  Age: 80 Year
  Sex: Male

DRUGS (2)
  1. UNASYN [Suspect]
     Dosage: TEXT:6 G
     Route: 042
     Dates: start: 20070307, end: 20070301
  2. DALACIN S [Concomitant]
     Dates: start: 20070307, end: 20070301

REACTIONS (1)
  - INTERNATIONAL NORMALISED RATIO INCREASED [None]
